FAERS Safety Report 12311117 (Version 1)
Quarter: 2016Q2

REPORT INFORMATION
  Report Type: Spontaneous
  Country: US (occurrence: US)
  Receive Date: 20160427
  Receipt Date: 20160427
  Transmission Date: 20160815
  Serious: No
  Sender: FDA-Public Use
  Company Number: US-PFIZER INC-2016223976

PATIENT
  Sex: Female

DRUGS (4)
  1. TRICORT-S [Suspect]
     Active Substance: BENZALKONIUM CHLORIDE\SALICYLIC ACID\TRIAMCINOLONE ACETONIDE
     Dosage: UNK
  2. GLIPIZIDE. [Suspect]
     Active Substance: GLIPIZIDE
     Dosage: UNK
  3. JANUVIA [Suspect]
     Active Substance: SITAGLIPTIN PHOSPHATE
     Dosage: UNK
  4. NOVOLOG [Suspect]
     Active Substance: INSULIN ASPART
     Dosage: UNK

REACTIONS (3)
  - Increased appetite [Unknown]
  - Blood glucose fluctuation [Unknown]
  - Weight increased [Unknown]
